FAERS Safety Report 23867524 (Version 1)
Quarter: 2024Q2

REPORT INFORMATION
  Report Type: Spontaneous
  Country: CA (occurrence: CA)
  Receive Date: 20240517
  Receipt Date: 20240517
  Transmission Date: 20240716
  Serious: Yes (Hospitalization)
  Sender: FDA-Public Use
  Company Number: CA-SANDOZ-SDZ2024CA049158

PATIENT
  Age: 52 Year
  Sex: Female

DRUGS (30)
  1. LITHIUM [Concomitant]
     Active Substance: LITHIUM
     Indication: Product used for unknown indication
     Dosage: UNK
     Route: 065
  2. NYSTATIN [Concomitant]
     Active Substance: NYSTATIN
     Indication: Product used for unknown indication
     Route: 065
  3. SERTRALINE [Concomitant]
     Active Substance: SERTRALINE HYDROCHLORIDE
     Indication: Product used for unknown indication
     Route: 065
  4. ENFUVIRTIDE [Concomitant]
     Active Substance: ENFUVIRTIDE
     Indication: Product used for unknown indication
     Dosage: UNK
     Route: 065
  5. LAMIVUDINE [Interacting]
     Active Substance: LAMIVUDINE
     Indication: Product used for unknown indication
     Dosage: UNK
     Route: 065
  6. ABACAVIR [Interacting]
     Active Substance: ABACAVIR
     Indication: Product used for unknown indication
     Dosage: UNK
     Route: 065
  7. ACETAMINOPHEN [Interacting]
     Active Substance: ACETAMINOPHEN
     Indication: Pain in extremity
     Route: 065
  8. APTIVUS [Interacting]
     Active Substance: TIPRANAVIR
     Indication: HIV infection
     Dosage: 500 MG, 1 EVERY 1 DAYS
     Route: 065
  9. ATOVAQUONE\PROGUANIL HYDROCHLORIDE [Interacting]
     Active Substance: ATOVAQUONE\PROGUANIL HYDROCHLORIDE
     Indication: Product used for unknown indication
     Dosage: UNK
     Route: 048
  10. BISACODYL [Interacting]
     Active Substance: BISACODYL
     Indication: Product used for unknown indication
     Dosage: UNK
     Route: 065
  11. CALCIUM CARBONATE [Interacting]
     Active Substance: CALCIUM CARBONATE
     Indication: Product used for unknown indication
     Dosage: UNK
     Route: 065
  12. CHLORAL HYDRATE [Interacting]
     Active Substance: CHLORAL HYDRATE
     Indication: Product used for unknown indication
     Dosage: UNK
     Route: 065
  13. CLONAZEPAM [Interacting]
     Active Substance: CLONAZEPAM
     Indication: Hypomania
     Dosage: 3 MG, 1 EVERY 1 DAYS
     Route: 048
  14. DIAZEPAM [Interacting]
     Active Substance: DIAZEPAM
     Dosage: 1500 MG, 1 EVERY 1 DAYS
     Route: 065
  15. DIAZEPAM [Interacting]
     Active Substance: DIAZEPAM
     Dosage: 250 MG, 2 EVERY 1 DAYS
     Route: 048
  16. DIAZEPAM [Interacting]
     Active Substance: DIAZEPAM
     Indication: Depression
     Dosage: UNK
     Route: 065
  17. IMODIUM [Interacting]
     Active Substance: LOPERAMIDE HYDROCHLORIDE
     Indication: Product used for unknown indication
     Dosage: UNK
     Route: 065
  18. KALETRA [Interacting]
     Active Substance: LOPINAVIR\RITONAVIR
     Indication: Product used for unknown indication
     Dosage: UNK
     Route: 065
  19. LACTULOSE [Interacting]
     Active Substance: LACTULOSE
     Indication: Product used for unknown indication
     Dosage: UNK
     Route: 048
  20. OLANZAPINE [Interacting]
     Active Substance: OLANZAPINE
     Dosage: 12.5 MG, 1 EVERY 1 DAYS
     Route: 048
  21. OLANZAPINE [Interacting]
     Active Substance: OLANZAPINE
     Indication: Product used for unknown indication
     Dosage: 5 MG, 1 EVERY 1 DAYS
     Route: 048
  22. PROCYCLIDINE HYDROCHLORIDE [Interacting]
     Active Substance: PROCYCLIDINE HYDROCHLORIDE
     Indication: Prophylaxis
     Dosage: 2.5 MG, 1 EVERY 1 DAYS
     Route: 048
  23. PROCYCLIDINE HYDROCHLORIDE [Interacting]
     Active Substance: PROCYCLIDINE HYDROCHLORIDE
     Indication: Musculoskeletal stiffness
  24. QUETIAPINE [Interacting]
     Active Substance: QUETIAPINE
     Indication: Psychotic disorder
     Dosage: 50 MG, 1 EVERY 1 DAYS
     Route: 065
  25. RISPERIDONE [Interacting]
     Active Substance: RISPERIDONE
     Indication: Psychotic disorder
     Dosage: 3 MG, 1 EVERY 1 DAYS
     Route: 048
  26. TEGRETOL [Interacting]
     Active Substance: CARBAMAZEPINE
     Indication: Hypomania
     Dosage: 200 MG, 2 EVERY 1 DAYS
     Route: 065
  27. TRAZODONE [Interacting]
     Active Substance: TRAZODONE HYDROCHLORIDE
     Indication: Depression
     Dosage: 50 MG, 1 EVERY 1 DAYS
     Route: 048
  28. DIVALPROEX SODIUM [Interacting]
     Active Substance: DIVALPROEX SODIUM
     Dosage: 1500 MG, 1 EVERY 1 DAYS
     Route: 048
  29. DIVALPROEX SODIUM [Interacting]
     Active Substance: DIVALPROEX SODIUM
     Indication: Product used for unknown indication
     Dosage: 2500 MG, 1 EVERY 1 DAYS
     Route: 048
  30. DIVALPROEX SODIUM [Interacting]
     Active Substance: DIVALPROEX SODIUM
     Dosage: UNK
     Route: 065

REACTIONS (6)
  - Cholelithiasis [Unknown]
  - Nausea [Unknown]
  - Pneumonia [Unknown]
  - Schizophrenia [Unknown]
  - Vomiting [Unknown]
  - Product use in unapproved indication [Unknown]
